FAERS Safety Report 15606830 (Version 1)
Quarter: 2018Q4

REPORT INFORMATION
  Report Type: Spontaneous
  Country: US (occurrence: US)
  Receive Date: 20181112
  Receipt Date: 20181112
  Transmission Date: 20190205
  Serious: No
  Sender: FDA-Public Use
  Company Number: US-GLAXOSMITHKLINE-US2018200247

PATIENT
  Age: 57 Year
  Sex: Female

DRUGS (1)
  1. ABREVA [Suspect]
     Active Substance: DOCOSANOL
     Indication: ORAL HERPES
     Dosage: UNK,APPLIED IT EITHER 2-4 TIMES A DAY, SOMETIMES 3-4 TIMES A DAY
     Route: 061
     Dates: start: 20181025, end: 20181031

REACTIONS (5)
  - Skin fissures [Recovering/Resolving]
  - Skin tightness [Recovering/Resolving]
  - Inappropriate schedule of product administration [Unknown]
  - Incorrect product administration duration [Unknown]
  - Dry skin [Recovering/Resolving]

NARRATIVE: CASE EVENT DATE: 20181025
